FAERS Safety Report 6007895-9 (Version None)
Quarter: 2008Q4

REPORT INFORMATION
  Report Type: 
  Country: None (occurrence: None)
  Receive Date: 20081217
  Receipt Date: 20080711
  Transmission Date: 20090506
  Serious: No
  Sender: FDA-Public Use
  Company Number: US-ASTRAZENECA-2008UW13859

PATIENT
  Age: 74 Year
  Sex: Female
  Weight: 90.7 kg

DRUGS (8)
  1. CRESTOR [Suspect]
     Indication: BLOOD CHOLESTEROL INCREASED
     Route: 048
  2. CRESTOR [Suspect]
     Route: 048
     Dates: start: 20070101
  3. ZETIA [Concomitant]
  4. AMIODARONE HCL [Concomitant]
  5. FOSINOPRIL SODIUM [Concomitant]
  6. COUMADIN [Concomitant]
  7. HYDROCHLOROTHIAZIDE [Concomitant]
  8. AMLODIPINE [Concomitant]

REACTIONS (1)
  - RENAL IMPAIRMENT [None]
